FAERS Safety Report 7698809-4 (Version None)
Quarter: 2011Q3

REPORT INFORMATION
  Report Type: 
  Country: None (occurrence: None)
  Receive Date: 20110819
  Receipt Date: 20110809
  Transmission Date: 20111222
  Serious: Yes (Hospitalization)
  Sender: FDA-Public Use
  Company Number: FR-ELI_LILLY_AND_COMPANY-FR201108002888

PATIENT
  Age: 9 Year
  Sex: Female

DRUGS (1)
  1. HUMATROPE [Suspect]
     Indication: TURNER'S SYNDROME
     Dosage: 2.2 MG, QD
     Route: 058
     Dates: start: 20081029

REACTIONS (3)
  - STAPHYLOCOCCAL SKIN INFECTION [None]
  - CYST [None]
  - ABSCESS [None]
